FAERS Safety Report 4339059-9 (Version None)
Quarter: 2004Q2

REPORT INFORMATION
  Report Type: 
  Country: None (occurrence: None)
  Receive Date: 20040412
  Receipt Date: 20040408
  Transmission Date: 20050107
  Serious: Yes (Other)
  Sender: FDA-Public Use
  Company Number: 2004-03-1625

PATIENT
  Age: 60 Year
  Sex: Male
  Weight: 85.2762 kg

DRUGS (9)
  1. PEG-INTRON [Suspect]
     Indication: HEPATITIS C
     Dosage: 120 MCQ QW SUBCUTANEOUS
     Route: 058
     Dates: start: 20020104, end: 20021201
  2. REBETOL [Suspect]
     Indication: HEPATITIS C
     Dosage: 1200 MG QD ORAL
     Route: 048
     Dates: start: 20020104, end: 20021201
  3. DIOVAN HCT [Concomitant]
  4. ASPIRIN [Concomitant]
  5. WELCHOL [Concomitant]
  6. ZETIA [Concomitant]
  7. EFFEXOR XR [Concomitant]
  8. BENICAR [Concomitant]
  9. HYDROCHLOROTHIAZIDE [Concomitant]

REACTIONS (22)
  - AGGRESSION [None]
  - AORTIC ATHEROSCLEROSIS [None]
  - CARDIOVASCULAR DECONDITIONING [None]
  - CAROTID ARTERY STENOSIS [None]
  - CONDITION AGGRAVATED [None]
  - DEPRESSION [None]
  - DYSPNOEA [None]
  - DYSPNOEA EXERTIONAL [None]
  - FATIGUE [None]
  - FEELING ABNORMAL [None]
  - HAEMOGLOBIN DECREASED [None]
  - HOSTILITY [None]
  - HYPERLIPIDAEMIA [None]
  - HYPERTENSION [None]
  - MOOD ALTERED [None]
  - MOOD SWINGS [None]
  - PNEUMONIA [None]
  - PULMONARY BULLA [None]
  - PULMONARY FUNCTION TEST ABNORMAL [None]
  - SNORING [None]
  - VENTRICULAR HYPERTROPHY [None]
  - VITAL CAPACITY DECREASED [None]
